FAERS Safety Report 9905311 (Version 1)
Quarter: 2013Q2

REPORT INFORMATION
  Report Type: Spontaneous
  Country: US (occurrence: None)
  Receive Date: 20130627
  Receipt Date: 20130627
  Transmission Date: 20140414
  Serious: No
  Sender: FDA-Public Use
  Company Number: 1000044426

PATIENT
  Age: 83 Year
  Sex: Female

DRUGS (11)
  1. LINZESS [Suspect]
     Indication: CONSTIPATION
     Route: 048
     Dates: start: 20130214, end: 201303
  2. CRESTOR (ROSUVASTATIN CALCIUM) (ROSUVASTATIN CALCIUM) [Concomitant]
  3. AMLODIPINE (AMLODIPINE) (AMLODIPINE) [Concomitant]
  4. LOSARTAN (LOSARTAN) (LOSARTAN) [Concomitant]
  5. METFORMIN (METFORMIN) (METFORMIN) [Concomitant]
  6. HYDROCHLOROTHIAZIDE (HYDROCHLOROTHIAZIDE) (HYDROCHLOROTHIAZIDE) [Concomitant]
  7. OMEPRAZOLE (OMEPRAZOLE) (OMEPRAZOLE) [Concomitant]
  8. IRON (IRON) (IRON) [Concomitant]
  9. CALCIUM (CALCIUM) (CALCIUM) [Concomitant]
  10. FISH OIL (FISH OIL) (FISH OIL) [Concomitant]
  11. VITAMIN D (VITAMIN D) (VITAMIN D) [Concomitant]

REACTIONS (1)
  - Diarrhoea [None]
